FAERS Safety Report 4996164-1 (Version None)
Quarter: 2006Q2

REPORT INFORMATION
  Report Type: 
  Country: None (occurrence: None)
  Receive Date: 20060504
  Receipt Date: 20060424
  Transmission Date: 20061013
  Serious: Yes (Death)
  Sender: FDA-Public Use
  Company Number: 2006-01607

PATIENT
  Age: 45 Year
  Sex: Female

DRUGS (3)
  1. FLUOROURACIL [Suspect]
     Indication: UTERINE CANCER
     Dosage: 400MG/M2 IV BOLUS, IV BOLUS; CONTINUOUS INFUSION, INTRAVENOUS
     Route: 042
     Dates: start: 20050101, end: 20050101
  2. CISPLATIN [Concomitant]
  3. ^CORTICOTHERAPY^ [Concomitant]

REACTIONS (1)
  - ENCEPHALOPATHY [None]
